FAERS Safety Report 21798678 (Version 1)
Quarter: 2022Q4

REPORT INFORMATION
  Report Type: Spontaneous
  Country: NL (occurrence: NL)
  Receive Date: 20221230
  Receipt Date: 20221230
  Transmission Date: 20230113
  Serious: Yes (Other)
  Sender: FDA-Public Use
  Company Number: None

PATIENT
  Sex: Female
  Weight: 83 kg

DRUGS (5)
  1. FLUCONAZOLE [Suspect]
     Active Substance: FLUCONAZOLE
     Indication: Fungal infection
     Dosage: BRAND NAME NOT SPECIFIED
     Dates: start: 20221122
  2. DILTIAZEM [Concomitant]
     Active Substance: DILTIAZEM
     Indication: Product used for unknown indication
     Dosage: 180MG
  3. ISOSORBIDEMONONITRAAT/PROMOCARD DURETTE [Concomitant]
     Indication: Product used for unknown indication
  4. ASPIRIN [Concomitant]
     Active Substance: ASPIRIN
     Indication: Product used for unknown indication
     Dosage: BRAND NAME NOT SPECIFIED
  5. PERINDOPRIL/COVERSYL ARG [Concomitant]
     Indication: Product used for unknown indication
     Dosage: 5 MG

REACTIONS (5)
  - Hallucination [Recovering/Resolving]
  - Chest pain [Recovering/Resolving]
  - Constipation [Recovering/Resolving]
  - Abdominal pain [Recovering/Resolving]
  - Back pain [Recovering/Resolving]
